FAERS Safety Report 7844382-7 (Version None)
Quarter: 2011Q4

REPORT INFORMATION
  Report Type: 
  Country: None (occurrence: None)
  Receive Date: 20111025
  Receipt Date: 20111005
  Transmission Date: 20120403
  Serious: Yes (Other)
  Sender: FDA-Public Use
  Company Number: US-CELGENEUS-163-21880-11100718

PATIENT
  Sex: Female

DRUGS (7)
  1. VALACYCLOVIR [Concomitant]
     Dosage: 500 MILLIGRAM
     Route: 065
  2. REVLIMID [Suspect]
     Indication: MULTIPLE MYELOMA
     Dosage: 10 MILLIGRAM
     Route: 048
     Dates: start: 20110914, end: 20110928
  3. VALSARTAN [Concomitant]
     Route: 065
  4. OPIOIDS [Concomitant]
     Route: 065
  5. ALLOPURINOL [Concomitant]
     Dosage: 300 MILLIGRAM
     Route: 065
  6. OMEPRAZOLE [Concomitant]
     Dosage: 20 MILLIGRAM
     Route: 065
  7. ANTIBIOTICS [Concomitant]
     Route: 065

REACTIONS (3)
  - MULTIPLE MYELOMA [None]
  - DRUG INEFFECTIVE [None]
  - RENAL FAILURE [None]
